FAERS Safety Report 10172823 (Version 3)
Quarter: 2014Q3

REPORT INFORMATION
  Report Type: Spontaneous
  Country: US (occurrence: US)
  Receive Date: 20140515
  Receipt Date: 20140701
  Transmission Date: 20150326
  Serious: Yes (Hospitalization)
  Sender: FDA-Public Use
  Company Number: US-GLAXOSMITHKLINE-A1073065A

PATIENT
  Age: 68 Year
  Sex: Female

DRUGS (10)
  1. UNSPECIFIED INHALER [Concomitant]
     Active Substance: UNSPECIFIED INGREDIENT
  2. ADVAIR HFA [Suspect]
     Active Substance: FLUTICASONE PROPIONATE\SALMETEROL XINAFOATE
     Indication: CHRONIC OBSTRUCTIVE PULMONARY DISEASE
     Dosage: 1PUFF TWICE PER DAY
     Route: 055
     Dates: start: 2006
  3. MULTAQ [Concomitant]
     Active Substance: DRONEDARONE
  4. DILTIAZEM [Concomitant]
     Active Substance: DILTIAZEM
  5. BABY ASPIRIN [Concomitant]
     Active Substance: ASPIRIN
  6. HEART MEDICATION [Concomitant]
     Active Substance: UNSPECIFIED INGREDIENT
  7. TRICOR [Concomitant]
     Active Substance: FENOFIBRATE
  8. LIPITOR [Concomitant]
     Active Substance: ATORVASTATIN CALCIUM
  9. WARFARIN [Concomitant]
     Active Substance: WARFARIN
  10. SPIRIVA [Concomitant]
     Active Substance: TIOTROPIUM BROMIDE MONOHYDRATE

REACTIONS (3)
  - Chronic obstructive pulmonary disease [Unknown]
  - Investigation [Unknown]
  - Oxygen supplementation [Unknown]

NARRATIVE: CASE EVENT DATE: 2009
